FAERS Safety Report 9775707 (Version 1)
Quarter: 2013Q4

REPORT INFORMATION
  Report Type: Spontaneous
  Country: US (occurrence: US)
  Receive Date: 20131220
  Receipt Date: 20131220
  Transmission Date: 20140711
  Serious: Yes (Hospitalization, Other)
  Sender: FDA-Public Use
  Company Number: US-TMC-CABO-13003779

PATIENT
  Sex: Female

DRUGS (4)
  1. COMETRIQ [Suspect]
     Indication: THYROID CANCER
     Dosage: 140 MG, QD
     Route: 048
     Dates: start: 20130606, end: 20130706
  2. COMETRIQ [Suspect]
     Dosage: 80 MG, QD
     Route: 048
     Dates: start: 2013
  3. SYNTHROID [Concomitant]
  4. DEXAMETHASONE [Concomitant]

REACTIONS (6)
  - Swelling face [Unknown]
  - Localised infection [Unknown]
  - Malignant neoplasm progression [Unknown]
  - Hair colour changes [Unknown]
  - Dehydration [Unknown]
  - Decreased appetite [Unknown]
